FAERS Safety Report 13706103 (Version 1)
Quarter: 2017Q2

REPORT INFORMATION
  Report Type: Spontaneous
  Country: US (occurrence: US)
  Receive Date: 20170630
  Receipt Date: 20170630
  Transmission Date: 20170830
  Serious: No
  Sender: FDA-Public Use
  Company Number: US-BAYER-2017-120143

PATIENT
  Age: 63 Year
  Sex: Female
  Weight: 62 kg

DRUGS (4)
  1. LYRICA [Concomitant]
     Active Substance: PREGABALIN
     Dosage: UNK
  2. BAYER LOW DOSE [Suspect]
     Active Substance: ASPIRIN
     Dosage: 1 DF, QD
     Route: 048
     Dates: start: 2005, end: 20170620
  3. SIMVASTATIN. [Concomitant]
     Active Substance: SIMVASTATIN
     Dosage: UNK
  4. MIRALAX [Suspect]
     Active Substance: POLYETHYLENE GLYCOL 3350
     Indication: GASTROINTESTINAL DISORDER
     Dosage: UNK
     Route: 048
     Dates: end: 20170617

REACTIONS (14)
  - Diarrhoea [Unknown]
  - Muscle spasms [Unknown]
  - Feeling abnormal [Unknown]
  - Incorrect drug administration duration [Unknown]
  - Burning sensation [Not Recovered/Not Resolved]
  - Dyspepsia [Unknown]
  - Diarrhoea [Unknown]
  - Anxiety [Unknown]
  - Product use issue [Unknown]
  - Underdose [Unknown]
  - Abdominal distension [Unknown]
  - Abdominal discomfort [Unknown]
  - Flatulence [Unknown]
  - Gastrointestinal pain [Unknown]

NARRATIVE: CASE EVENT DATE: 20170618
